FAERS Safety Report 9233801 (Version 2)
Quarter: 2013Q2

REPORT INFORMATION
  Report Type: Spontaneous
  Country: US (occurrence: US)
  Receive Date: 20130416
  Receipt Date: 20130502
  Transmission Date: 20140414
  Serious: No
  Sender: FDA-Public Use
  Company Number: US-009507513-1304USA002395

PATIENT
  Age: 49 Year
  Sex: Female
  Weight: 68.27 kg

DRUGS (6)
  1. PEG-INTRON [Suspect]
     Dosage: 96 MICROGRAM, QW
     Route: 058
  2. VICTRELIS [Suspect]
     Dosage: 800 MG, TID
     Route: 048
  3. RIBAVIRIN [Suspect]
     Dosage: 1000 UNK, QD
     Route: 048
  4. ADDERALL TABLETS [Concomitant]
     Route: 048
  5. MILK THISTLE [Concomitant]
     Route: 048
  6. VITAMINS (UNSPECIFIED) [Suspect]
     Dosage: 1000 DF, QD

REACTIONS (5)
  - Injection site pruritus [Unknown]
  - Injection site erythema [Unknown]
  - Nausea [Unknown]
  - Pruritus [Unknown]
  - Papule [Unknown]
